FAERS Safety Report 8953497 (Version 2)
Quarter: 2013Q1

REPORT INFORMATION
  Report Type: Spontaneous
  Country: FR (occurrence: FR)
  Receive Date: 20121206
  Receipt Date: 20130204
  Transmission Date: 20140127
  Serious: Yes (Death, Hospitalization)
  Sender: FDA-Public Use
  Company Number: FR-GLAXOSMITHKLINE-B0848958A

PATIENT
  Age: 33 Year
  Sex: Male

DRUGS (15)
  1. AUGMENTIN [Suspect]
     Indication: BRONCHIAL OBSTRUCTION
     Route: 048
     Dates: start: 201211, end: 201211
  2. KALETRA [Suspect]
     Indication: HIV INFECTION WHO CLINICAL STAGE IV
     Dosage: 1UNIT PER DAY
     Route: 048
     Dates: start: 20121024, end: 20121112
  3. INTELENCE [Suspect]
     Indication: HIV INFECTION WHO CLINICAL STAGE IV
     Dosage: 400MG PER DAY
     Route: 048
     Dates: start: 20121024, end: 20121112
  4. LAMOTRIGINE [Suspect]
     Indication: PARTIAL SEIZURES
     Dosage: 25MG PER DAY
     Route: 048
     Dates: start: 20121031, end: 20121112
  5. URBANYL [Suspect]
     Indication: PARTIAL SEIZURES
     Dosage: 20MG PER DAY
     Route: 048
     Dates: start: 20121031, end: 20121112
  6. BACTRIM FORTE [Suspect]
     Indication: PROPHYLAXIS
     Route: 048
     Dates: start: 20120923, end: 20121112
  7. FLUCONAZOLE [Suspect]
     Indication: ORAL CANDIDIASIS
     Route: 048
     Dates: start: 20120929, end: 20121112
  8. INTERLEUKIN-7 [Suspect]
     Indication: PROGRESSIVE MULTIFOCAL LEUKOENCEPHALOPATHY
     Dosage: 1000MCG WEEKLY
     Route: 058
     Dates: start: 20121101, end: 20121109
  9. PREZISTA [Concomitant]
     Route: 065
  10. TRUVADA [Concomitant]
     Route: 065
  11. NORVIR [Concomitant]
     Route: 065
  12. RIVOTRIL [Concomitant]
     Indication: PARTIAL SEIZURES
     Route: 065
     Dates: start: 20121026
  13. KEPPRA [Concomitant]
     Indication: PARTIAL SEIZURES
     Route: 065
     Dates: start: 20121026
  14. MOTILIUM [Concomitant]
     Route: 065
  15. NASOGASTRIC TUBE [Concomitant]
     Dates: start: 20121103

REACTIONS (1)
  - Death [Fatal]
